FAERS Safety Report 4814853-6 (Version None)
Quarter: 2005Q4

REPORT INFORMATION
  Report Type: 
  Country: None (occurrence: None)
  Receive Date: 20051027
  Receipt Date: 20051027
  Transmission Date: 20060501
  Serious: Yes (Other)
  Sender: FDA-Public Use
  Company Number: None

PATIENT
  Age: 52 Year
  Sex: Female
  Weight: 128.6 kg

DRUGS (14)
  1. GEMFIBROZIL [Suspect]
  2. HYDROCHLOROTHIAZIDE [Concomitant]
  3. INSULIN NOVOLIN 70/30 (NPH/REG) INJ NOVO [Concomitant]
  4. METFORMIN HCL [Concomitant]
  5. TRAMADOL HCL [Concomitant]
  6. LOVASTATIN [Concomitant]
  7. GEMFIBROZIL [Concomitant]
  8. NEFAZODONE HCL [Concomitant]
  9. TRAZODONE HCL [Concomitant]
  10. ETODOLAC [Concomitant]
  11. GABAPENTIN [Concomitant]
  12. SYNTHROID [Concomitant]
  13. BUPROPION HCL [Concomitant]
  14. NYSTATIN [Concomitant]

REACTIONS (1)
  - UNEVALUABLE EVENT [None]
